FAERS Safety Report 11446162 (Version 1)
Quarter: 2015Q3

REPORT INFORMATION
  Report Type: Spontaneous
  Country: US (occurrence: US)
  Receive Date: 20150831
  Receipt Date: 20150831
  Transmission Date: 20151125
  Serious: Yes (Other)
  Sender: FDA-Public Use
  Company Number: US-ELI_LILLY_AND_COMPANY-US200810002278

PATIENT
  Age: 43 Year
  Sex: Female

DRUGS (4)
  1. CYMBALTA [Suspect]
     Active Substance: DULOXETINE HYDROCHLORIDE
     Dosage: 30 MG, UNK
  2. CYMBALTA [Suspect]
     Active Substance: DULOXETINE HYDROCHLORIDE
     Dosage: 60 MG, UNK
     Dates: end: 20080915
  3. PAXIL [Concomitant]
     Active Substance: PAROXETINE HYDROCHLORIDE
     Indication: DEPRESSION
     Dosage: 60 MG, UNK
  4. VALIUM [Concomitant]
     Active Substance: DIAZEPAM
     Dosage: 1 D/F, UNK
     Dates: end: 20080819

REACTIONS (1)
  - Generalised tonic-clonic seizure [Recovering/Resolving]

NARRATIVE: CASE EVENT DATE: 20080914
